FAERS Safety Report 23803128 (Version 1)
Quarter: 2024Q2

REPORT INFORMATION
  Report Type: Spontaneous
  Country: US (occurrence: None)
  Receive Date: 20240430
  Receipt Date: 20240430
  Transmission Date: 20240716
  Serious: Yes (Hospitalization)
  Sender: FDA-Public Use
  Company Number: None

PATIENT
  Age: 91 Year
  Sex: Male
  Weight: 68 kg

DRUGS (1)
  1. APIXABAN [Suspect]
     Active Substance: APIXABAN
     Dosage: FREQUENCY : TWICE A DAY;?
     Route: 048
     Dates: start: 20180701, end: 20230217

REACTIONS (4)
  - Anaemia [None]
  - Haemorrhage [None]
  - Occult blood positive [None]
  - Angiodysplasia [None]

NARRATIVE: CASE EVENT DATE: 20230217
